FAERS Safety Report 25466810 (Version 1)
Quarter: 2025Q2

REPORT INFORMATION
  Report Type: Report from Study
  Country: PT (occurrence: PT)
  Receive Date: 20250623
  Receipt Date: 20250623
  Transmission Date: 20250717
  Serious: Yes (Other)
  Sender: ROCHE
  Company Number: None

PATIENT
  Sex: Female

DRUGS (14)
  1. OBINUTUZUMAB [Suspect]
     Active Substance: OBINUTUZUMAB
     Indication: Chronic lymphocytic leukaemia
     Route: 042
     Dates: start: 20231116, end: 20231116
  2. OBINUTUZUMAB [Suspect]
     Active Substance: OBINUTUZUMAB
     Route: 042
     Dates: start: 20231019, end: 20231019
  3. OBINUTUZUMAB [Suspect]
     Active Substance: OBINUTUZUMAB
     Route: 042
     Dates: start: 20230922, end: 20230922
  4. OBINUTUZUMAB [Suspect]
     Active Substance: OBINUTUZUMAB
     Route: 042
     Dates: start: 20230727, end: 20230727
  5. OBINUTUZUMAB [Suspect]
     Active Substance: OBINUTUZUMAB
     Route: 042
     Dates: start: 20230629, end: 20230629
  6. OBINUTUZUMAB [Suspect]
     Active Substance: OBINUTUZUMAB
     Route: 042
     Dates: start: 20230713, end: 20230713
  7. OBINUTUZUMAB [Suspect]
     Active Substance: OBINUTUZUMAB
     Route: 042
     Dates: start: 20230706, end: 20230706
  8. OBINUTUZUMAB [Suspect]
     Active Substance: OBINUTUZUMAB
     Route: 042
     Dates: start: 20230824, end: 20230824
  9. OBINUTUZUMAB [Suspect]
     Active Substance: OBINUTUZUMAB
     Route: 042
     Dates: start: 20230630, end: 20230630
  10. VENETOCLAX [Suspect]
     Active Substance: VENETOCLAX
     Indication: Chronic lymphocytic leukaemia
     Dosage: FORM STRENGTH: 20 MG
     Route: 048
     Dates: start: 20230720, end: 20230726
  11. VENETOCLAX [Suspect]
     Active Substance: VENETOCLAX
     Dosage: FORM STRENGTH: 50 MG
     Route: 048
     Dates: start: 20230727, end: 20230802
  12. VENETOCLAX [Suspect]
     Active Substance: VENETOCLAX
     Dosage: FORM STRENGTH: 200 MG
     Route: 048
     Dates: start: 20230810, end: 20230816
  13. VENETOCLAX [Suspect]
     Active Substance: VENETOCLAX
     Dosage: FORM STRENGTH: 400 MG
     Route: 048
     Dates: start: 20230817, end: 20240629
  14. VENETOCLAX [Suspect]
     Active Substance: VENETOCLAX
     Dosage: FORM STRENGTH: 100 MG
     Route: 048
     Dates: start: 20230803, end: 20230809

REACTIONS (3)
  - Haematotoxicity [Recovered/Resolved]
  - Leukopenia [Recovered/Resolved]
  - Neutropenia [Recovered/Resolved]

NARRATIVE: CASE EVENT DATE: 20240125
